FAERS Safety Report 16050578 (Version 1)
Quarter: 2019Q1

REPORT INFORMATION
  Report Type: Spontaneous
  Country: IN (occurrence: IN)
  Receive Date: 20190308
  Receipt Date: 20190308
  Transmission Date: 20190418
  Serious: Yes (Death, Other)
  Sender: FDA-Public Use
  Company Number: IN-ACCORD-111040

PATIENT
  Age: 57 Year
  Sex: Male

DRUGS (1)
  1. METHOTREXATE. [Suspect]
     Active Substance: METHOTREXATE
     Indication: PSORIASIS
     Dosage: DURATION OF INTAKE OF ACUTE CUMULATIVE DOSE: 4 DAYS

REACTIONS (7)
  - Pancytopenia [Unknown]
  - Ulcer haemorrhage [Unknown]
  - Mucosal ulceration [Unknown]
  - Liver function test abnormal [Unknown]
  - Overdose [Unknown]
  - Sepsis [Fatal]
  - Renal impairment [Unknown]
